FAERS Safety Report 17207890 (Version 1)
Quarter: 2019Q4

REPORT INFORMATION
  Report Type: Spontaneous
  Country: HR (occurrence: HR)
  Receive Date: 20191227
  Receipt Date: 20191227
  Transmission Date: 20200122
  Serious: Yes (Life-Threatening, Hospitalization, Other)
  Sender: FDA-Public Use
  Company Number: HR-JNJFOC-20191238735

PATIENT
  Age: 55 Year
  Sex: Male

DRUGS (12)
  1. COUPET [Concomitant]
     Active Substance: ROSUVASTATIN CALCIUM
  2. ACIPAN [Concomitant]
     Active Substance: PANTOPRAZOLE SODIUM
     Route: 048
  3. PLIVIT D3 [Concomitant]
     Active Substance: CHOLECALCIFEROL
     Route: 048
  4. REMICADE [Suspect]
     Active Substance: INFLIXIMAB
     Indication: ANKYLOSING SPONDYLITIS
     Route: 042
     Dates: start: 20110512, end: 20190425
  5. VELAFAX [Concomitant]
     Active Substance: VENLAFAXINE HYDROCHLORIDE
     Route: 048
  6. DICLO DUO [Concomitant]
     Active Substance: DICLOFENAC SODIUM
     Route: 048
  7. CONCOR COR [Concomitant]
     Active Substance: BISOPROLOL FUMARATE
     Route: 048
  8. DIUVER [Concomitant]
     Active Substance: TORSEMIDE
     Route: 048
  9. TRITACE [Concomitant]
     Active Substance: RAMIPRIL
     Route: 048
  10. CALCIUM CARBONATE. [Concomitant]
     Active Substance: CALCIUM CARBONATE
     Route: 048
  11. MEDROL [Concomitant]
     Active Substance: METHYLPREDNISOLONE
     Route: 048
  12. METOTREKSAT CIPLA [Concomitant]
     Route: 048

REACTIONS (3)
  - Sepsis [Recovering/Resolving]
  - Infection [Recovering/Resolving]
  - Arthritis bacterial [Recovering/Resolving]
